FAERS Safety Report 6617239-7 (Version None)
Quarter: 2010Q1

REPORT INFORMATION
  Report Type: 
  Country: None (occurrence: None)
  Receive Date: 20100307
  Receipt Date: 20091021
  Transmission Date: 20100710
  Serious: No
  Sender: FDA-Public Use
  Company Number: US-BAYER-200837625NA

PATIENT
  Sex: Female

DRUGS (5)
  1. MAGNEVIST [Suspect]
     Indication: ARTERIOGRAM RENAL
  2. OMNISCAN [Suspect]
     Indication: ARTERIOGRAM RENAL
  3. OPTIMARK [Suspect]
     Indication: ARTERIOGRAM RENAL
  4. MULTIHANCE [Suspect]
     Indication: ARTERIOGRAM RENAL
  5. PROHANCE [Suspect]
     Indication: ARTERIOGRAM RENAL

REACTIONS (5)
  - ANHEDONIA [None]
  - ANXIETY [None]
  - EMOTIONAL DISTRESS [None]
  - NEPHROGENIC SYSTEMIC FIBROSIS [None]
  - PAIN [None]
